FAERS Safety Report 8082891-9 (Version None)
Quarter: 2012Q1

REPORT INFORMATION
  Report Type: 
  Country: None (occurrence: None)
  Receive Date: 20120127
  Receipt Date: 20110124
  Transmission Date: 20120608
  Serious: No
  Sender: FDA-Public Use
  Company Number: US-ABBOTT-11P-163-0700617-00

PATIENT
  Age: 54 Year
  Sex: Female

DRUGS (7)
  1. HYDROCODONE BITARTRATE [Concomitant]
     Indication: PAIN
     Dosage: AS NEEDED
  2. BENADRYL [Concomitant]
     Indication: PRURITUS
  3. CARISOPRODOL [Concomitant]
     Indication: MUSCLE RELAXANT THERAPY
  4. BENADRYL [Concomitant]
     Indication: HYPERSENSITIVITY
  5. HUMIRA [Suspect]
     Indication: PRODUCT USED FOR UNKNOWN INDICATION
     Dosage: INTERRUPTED
     Dates: start: 20101209, end: 20101227
  6. CLONIDINE [Concomitant]
     Indication: HYPERTENSION
  7. KLONADINE [Concomitant]
     Indication: ANXIETY

REACTIONS (5)
  - SKIN IRRITATION [None]
  - SKIN DISCOLOURATION [None]
  - BLISTER [None]
  - CHEMICAL INJURY [None]
  - PAIN [None]
